FAERS Safety Report 5154279-1 (Version None)
Quarter: 2006Q4

REPORT INFORMATION
  Report Type: 
  Country: None (occurrence: None)
  Receive Date: 20061114
  Receipt Date: 20061103
  Transmission Date: 20070319
  Serious: Yes (Life-Threatening)
  Sender: FDA-Public Use
  Company Number: GXKR2006IT07070

PATIENT
  Age: 38 Year
  Sex: Female
  Weight: 72 kg

DRUGS (3)
  1. PROPRANOLOL [Suspect]
     Indication: SUPRAVENTRICULAR TACHYCARDIA
     Dosage: 15 MG, INTRAVENOUS
     Route: 042
  2. AMIODARONE HCL [Concomitant]
     Indication: SUPRAVENTRICULAR TACHYCARDIA
     Dosage: SEE IMAGE
     Route: 042
  3. ADENOSINE [Concomitant]

REACTIONS (6)
  - APNOEA [None]
  - CARDIAC ARREST [None]
  - CAROTID PULSE DECREASED [None]
  - DRUG INTERACTION [None]
  - LETHARGY [None]
  - SINUS BRADYCARDIA [None]
